FAERS Safety Report 9730234 (Version 4)
Quarter: 2013Q4

REPORT INFORMATION
  Report Type: Spontaneous
  Country: BR (occurrence: BR)
  Receive Date: 20131202
  Receipt Date: 20131219
  Transmission Date: 20140711
  Serious: Yes (Other)
  Sender: FDA-Public Use
  Company Number: BR-AMGEN-BRASP2013059733

PATIENT
  Age: 48 Year
  Sex: Female
  Weight: 54 kg

DRUGS (6)
  1. PROLIA [Suspect]
     Indication: OSTEOPOROSIS
     Dosage: 60 MG, CYCLICAL
     Route: 065
     Dates: start: 20130715
  2. CALCIUM + VITAMIN D [Concomitant]
     Dosage: UNK UNK, QD
     Dates: start: 2003
  3. CALCIUM + VITAMIN D [Concomitant]
     Dates: start: 2003
  4. AZATHIOPRINE [Concomitant]
  5. INFLIXIMAB [Concomitant]
  6. INFLIXIMAB [Concomitant]
     Dates: start: 2003

REACTIONS (43)
  - Crohn^s disease [Unknown]
  - Diarrhoea [Unknown]
  - Oedema [Unknown]
  - Pain [Unknown]
  - Proctalgia [Unknown]
  - Vulvovaginal pain [Unknown]
  - Abdominal pain [Unknown]
  - Groin pain [Unknown]
  - Conjunctivitis [Unknown]
  - Vision blurred [Unknown]
  - Dizziness [Unknown]
  - Ill-defined disorder [Unknown]
  - Muscle fatigue [Unknown]
  - Amnesia [Unknown]
  - Immunosuppression [Unknown]
  - Confusional state [Unknown]
  - Fistula [Unknown]
  - Abdominal distension [Unknown]
  - Depression [Unknown]
  - Depressed mood [Unknown]
  - Anxiety [Unknown]
  - Decreased appetite [Unknown]
  - Depressed mood [Unknown]
  - Fatigue [Unknown]
  - Insomnia [Unknown]
  - Sciatica [Unknown]
  - Arthralgia [Unknown]
  - Flatulence [Unknown]
  - Flatulence [Unknown]
  - Constipation [Unknown]
  - Hot flush [Unknown]
  - Sinusitis [Unknown]
  - Sinus operation [Unknown]
  - Skin lesion [Unknown]
  - Arthralgia [Unknown]
  - Alopecia [Unknown]
  - Xerosis [Unknown]
  - Jaw operation [Unknown]
  - Vertigo [Unknown]
  - Feeling hot [Unknown]
  - Night sweats [Unknown]
  - Anxiety [Unknown]
  - Pain in extremity [Unknown]
